FAERS Safety Report 20245593 (Version 1)
Quarter: 2021Q4

REPORT INFORMATION
  Report Type: Other
  Country: US (occurrence: None)
  Receive Date: 20211229
  Receipt Date: 20211229
  Transmission Date: 20220303
  Serious: Yes (Other)
  Sender: FDA-Public Use
  Company Number: US-ROCHE-2981400

PATIENT
  Sex: Male
  Weight: 109.87 kg

DRUGS (15)
  1. OCREVUS [Suspect]
     Active Substance: OCRELIZUMAB
     Indication: Progressive relapsing multiple sclerosis
     Dosage: INFUSION, PREVIOUS DATE OF TREATMENT: 19/NOV/2020
     Route: 042
  2. DETROL LA [Concomitant]
     Active Substance: TOLTERODINE TARTRATE
  3. LOPRESSOR [Concomitant]
     Active Substance: METOPROLOL TARTRATE
  4. DILTIAZEM HYDROCHLORIDE [Concomitant]
     Active Substance: DILTIAZEM HYDROCHLORIDE
  5. ZYLOPRIM [Concomitant]
     Active Substance: ALLOPURINOL
  6. INDOCIN [Concomitant]
     Active Substance: INDOMETHACIN
  7. BUSPAR [Concomitant]
     Active Substance: BUSPIRONE HYDROCHLORIDE
  8. DITROPAN [Concomitant]
     Active Substance: OXYBUTYNIN CHLORIDE
  9. OXYCODONE HYDROCHLORIDE [Concomitant]
     Active Substance: OXYCODONE HYDROCHLORIDE
  10. VIBRAMYCIN [Concomitant]
     Active Substance: DOXYCYCLINE
  11. OXYCONTIN [Concomitant]
     Active Substance: OXYCODONE HYDROCHLORIDE
  12. LYRICA [Concomitant]
     Active Substance: PREGABALIN
  13. TRICOR [Concomitant]
     Active Substance: FENOFIBRATE
  14. TECFIDERA [Concomitant]
     Active Substance: DIMETHYL FUMARATE
  15. MIRALAX [Concomitant]
     Active Substance: POLYETHYLENE GLYCOL 3350

REACTIONS (1)
  - Osteomyelitis [Recovered/Resolved]
